FAERS Safety Report 8202941-6 (Version None)
Quarter: 2012Q1

REPORT INFORMATION
  Report Type: 
  Country: None (occurrence: None)
  Receive Date: 20120312
  Receipt Date: 20120306
  Transmission Date: 20120608
  Serious: Yes (Hospitalization, Disabling)
  Sender: FDA-Public Use
  Company Number: GB-ABBOTT-12P-167-0908811-00

PATIENT
  Age: 79 Year
  Sex: Male

DRUGS (7)
  1. XARELTO [Suspect]
     Indication: THROMBOSIS PROPHYLAXIS
     Route: 048
     Dates: start: 20110726, end: 20110830
  2. CLARITHROMYCIN [Suspect]
     Indication: UPPER RESPIRATORY TRACT INFECTION
     Route: 048
     Dates: start: 20110825, end: 20110901
  3. ACETAMINOPHEN [Concomitant]
     Indication: PRODUCT USED FOR UNKNOWN INDICATION
  4. CLARITHROMYCIN [Suspect]
     Indication: EAR INFECTION
  5. TRAMADOL HCL [Concomitant]
     Indication: PRODUCT USED FOR UNKNOWN INDICATION
  6. ZOLPIDEM [Concomitant]
     Indication: PRODUCT USED FOR UNKNOWN INDICATION
  7. LERCANIDIPINE [Suspect]
     Indication: HYPERTENSION
     Dosage: 10 MG
     Dates: start: 20110628, end: 20110907

REACTIONS (6)
  - TOOTH INFECTION [None]
  - LIVER FUNCTION TEST ABNORMAL [None]
  - OEDEMA PERIPHERAL [None]
  - DYSPNOEA [None]
  - PLEURAL EFFUSION [None]
  - PERICARDIAL EFFUSION [None]
